FAERS Safety Report 9384633 (Version 3)
Quarter: 2013Q3

REPORT INFORMATION
  Report Type: Spontaneous
  Country: PL (occurrence: PL)
  Receive Date: 20130705
  Receipt Date: 20130802
  Transmission Date: 20140515
  Serious: Yes (Life-Threatening, Hospitalization)
  Sender: FDA-Public Use
  Company Number: PL-COVIDIEN/TYCO HEALTHCARE/MALLINCKRODT-T201303600

PATIENT
  Age: 41 Year
  Sex: Male
  Weight: 100 kg

DRUGS (1)
  1. OPTIRAY [Suspect]
     Indication: UROGRAM
     Dosage: 10 ML, SINGLE
     Route: 042
     Dates: start: 20130625, end: 20130625

REACTIONS (4)
  - Dyspnoea [Recovered/Resolved]
  - Swollen tongue [Recovered/Resolved]
  - Erythema [Recovered/Resolved]
  - Cough [Recovered/Resolved]
